FAERS Safety Report 26191177 (Version 1)
Quarter: 2025Q4

REPORT INFORMATION
  Report Type: Spontaneous
  Country: US (occurrence: None)
  Receive Date: 20251222
  Receipt Date: 20251222
  Transmission Date: 20260118
  Serious: Yes (Other)
  Sender: FDA-CTU
  Company Number: None

PATIENT
  Age: 49 Year
  Sex: Male

DRUGS (1)
  1. COMETRIQ [Suspect]
     Active Substance: CABOZANTINIB S-MALATE
     Indication: Thyroid cancer
     Dosage: 60MG QD ORAL
     Route: 048
     Dates: start: 20251222, end: 202512

REACTIONS (2)
  - Off label use [None]
  - Product substitution issue [None]

NARRATIVE: CASE EVENT DATE: 20251222
